FAERS Safety Report 22656053 (Version 1)
Quarter: 2023Q2

REPORT INFORMATION
  Report Type: Other
  Country: AU (occurrence: AU)
  Receive Date: 20230629
  Receipt Date: 20230629
  Transmission Date: 20230721
  Serious: Yes (Other)
  Sender: FDA-Public Use
  Company Number: AU-MAYNE PHARMA-2023MYN000504

PATIENT

DRUGS (2)
  1. DOXYCYCLINE HYCLATE [Suspect]
     Active Substance: DOXYCYCLINE HYCLATE
     Indication: Epidermolysis bullosa
     Dosage: 100 MG, QD
     Route: 048
  2. THALIDOMIDE [Suspect]
     Active Substance: THALIDOMIDE
     Indication: Epidermolysis bullosa
     Dosage: 50 MG, QD
     Route: 048

REACTIONS (2)
  - Epidermolysis bullosa [Not Recovered/Not Resolved]
  - Rebound effect [Not Recovered/Not Resolved]
